FAERS Safety Report 12204577 (Version 2)
Quarter: 2016Q2

REPORT INFORMATION
  Report Type: Spontaneous
  Country: IL (occurrence: IL)
  Receive Date: 20160323
  Receipt Date: 20160405
  Transmission Date: 20160815
  Serious: Yes (Hospitalization, Other)
  Sender: FDA-Public Use
  Company Number: IL-JNJFOC-20160319710

PATIENT
  Age: 72 Year
  Sex: Male

DRUGS (3)
  1. XARELTO [Suspect]
     Active Substance: RIVAROXABAN
     Indication: ATRIAL FIBRILLATION
     Route: 048
     Dates: start: 201509, end: 201603
  2. XARELTO [Suspect]
     Active Substance: RIVAROXABAN
     Indication: CEREBROVASCULAR ACCIDENT PROPHYLAXIS
     Route: 048
     Dates: start: 201509, end: 201603
  3. LOSEC [Concomitant]
     Active Substance: OMEPRAZOLE
     Route: 065

REACTIONS (5)
  - Haemoglobin decreased [Recovered/Resolved]
  - Gastritis [Unknown]
  - Haematochezia [Recovered/Resolved]
  - Dizziness [Unknown]
  - Duodenal ulcer [Unknown]
